FAERS Safety Report 5217009-0 (Version None)
Quarter: 2007Q1

REPORT INFORMATION
  Report Type: 
  Country: None (occurrence: None)
  Receive Date: 20070119
  Receipt Date: 20070110
  Transmission Date: 20070707
  Serious: Yes (Death)
  Sender: FDA-Public Use
  Company Number: CFT Y-1757 1

PATIENT
  Age: 14 Year
  Sex: Female

DRUGS (1)
  1. CEFDITOREN PIVOXIL FINE GRANULES [Suspect]
     Dosage: ORAL
     Route: 048
     Dates: start: 20051101

REACTIONS (1)
  - SHOCK [None]
